FAERS Safety Report 18129066 (Version 1)
Quarter: 2020Q3

REPORT INFORMATION
  Report Type: Other
  Country: IT (occurrence: IT)
  Receive Date: 20200810
  Receipt Date: 20200810
  Transmission Date: 20201103
  Serious: Yes (Other)
  Sender: FDA-Public Use
  Company Number: IT-ROCHE-2653826

PATIENT

DRUGS (6)
  1. 5?FLUOROURACIL [Suspect]
     Active Substance: FLUOROURACIL
     Indication: RECTAL CANCER
     Dosage: DAYS 1?4 AND 29?32
     Route: 065
  2. CISPLATIN. [Suspect]
     Active Substance: CISPLATIN
     Indication: RECTAL CANCER
     Route: 065
  3. RALTITREXED [Suspect]
     Active Substance: RALTITREXED
     Indication: RECTAL CANCER
     Route: 042
  4. OXALIPLATIN. [Suspect]
     Active Substance: OXALIPLATIN
     Indication: RECTAL CANCER
     Route: 065
  5. LEUCOVORIN. [Suspect]
     Active Substance: LEUCOVORIN
     Indication: RECTAL CANCER
     Dosage: 750?1,000 MG/M2, CONTINUOUS INFUSION FROM 4 TO 5 DAYS
     Route: 042
  6. CAPECITABINE. [Suspect]
     Active Substance: CAPECITABINE
     Indication: RECTAL CANCER
     Dosage: 825?1300 MG/M2
     Route: 065

REACTIONS (8)
  - Rectal haemorrhage [Unknown]
  - Diarrhoea [Unknown]
  - Telangiectasia [Unknown]
  - Skin exfoliation [Unknown]
  - Haematuria [Unknown]
  - Anaemia [Unknown]
  - Dysuria [Unknown]
  - Functional gastrointestinal disorder [Unknown]
